FAERS Safety Report 20563091 (Version 2)
Quarter: 2022Q1

REPORT INFORMATION
  Report Type: Report from Study
  Country: JP (occurrence: JP)
  Receive Date: 20220307
  Receipt Date: 20220328
  Transmission Date: 20220424
  Serious: Yes (Hospitalization)
  Sender: FDA-Public Use
  Company Number: JP-ABBVIE-20K-087-3278362-00

PATIENT
  Age: 54 Year
  Sex: Female
  Weight: 51 kg

DRUGS (35)
  1. CARBIDOPA\LEVODOPA [Suspect]
     Active Substance: CARBIDOPA\LEVODOPA
     Indication: Parkinson^s disease
     Dosage: MD: 5.3 ML?CD: 3.2 ML/HR X 16 HRS
     Route: 050
     Dates: start: 20191119, end: 20191121
  2. CARBIDOPA\LEVODOPA [Suspect]
     Active Substance: CARBIDOPA\LEVODOPA
     Dosage: MD: 5.3 ML?CD: 3.3 ML/HR X 16 HRS
     Route: 050
     Dates: start: 20191122, end: 20191128
  3. CARBIDOPA\LEVODOPA [Suspect]
     Active Substance: CARBIDOPA\LEVODOPA
     Dosage: MD: 5.3 ML?CD: 3.4 ML/HR X 16 HRS
     Route: 050
     Dates: start: 20191129, end: 20191201
  4. CARBIDOPA\LEVODOPA [Suspect]
     Active Substance: CARBIDOPA\LEVODOPA
     Dosage: MD: 5.3 ML?CD: 3.5 ML/HR X 16 HRS?ED: 1 ML/UNIT X 2
     Route: 050
     Dates: start: 20191202, end: 20191205
  5. CARBIDOPA\LEVODOPA [Suspect]
     Active Substance: CARBIDOPA\LEVODOPA
     Dosage: MD: 5.3 ML?CD: 3.6 ML/HR X 16 HRS?ED: 1 ML/UNIT X 2
     Route: 050
     Dates: start: 20191206, end: 20200415
  6. CARBIDOPA\LEVODOPA [Suspect]
     Active Substance: CARBIDOPA\LEVODOPA
     Dosage: MD: 5.3 ML?CD: 3.7 ML/HR X 16 HRS?ED: 1.1 ML/UNIT X 4
     Route: 050
     Dates: start: 20200416, end: 20200513
  7. CARBIDOPA\LEVODOPA [Suspect]
     Active Substance: CARBIDOPA\LEVODOPA
     Dosage: MD: 5.3 ML CD: 3.8 ML/HR X 16 HRS ED: 1.2 ML/UNIT X 4
     Route: 050
     Dates: start: 20200514, end: 20210113
  8. CARBIDOPA\LEVODOPA [Suspect]
     Active Substance: CARBIDOPA\LEVODOPA
     Dosage: MD: 5.3 ML CD: 3.9 ML/HR X 16 HRS ED: 1.2 ML/UNIT X 4
     Route: 050
     Dates: start: 20210114, end: 20210909
  9. CARBIDOPA\LEVODOPA [Suspect]
     Active Substance: CARBIDOPA\LEVODOPA
     Dosage: MD: 5.3 ML CD: 3.9 ML/HR X 16 HRS ED: 1.3 ML/UNIT X 4
     Route: 050
     Dates: start: 20210910
  10. RINDERON V [Concomitant]
     Active Substance: BETAMETHASONE VALERATE
     Indication: Product used for unknown indication
     Dosage: EVERY DAY
     Route: 061
  11. RINDERON V [Concomitant]
     Active Substance: BETAMETHASONE VALERATE
     Dosage: PRN
     Route: 061
  12. ISTRADEFYLLINE [Concomitant]
     Active Substance: ISTRADEFYLLINE
     Indication: Parkinson^s disease
     Route: 048
  13. ROTIGOTINE [Concomitant]
     Active Substance: ROTIGOTINE
     Indication: Parkinson^s disease
     Route: 062
     Dates: start: 20191204, end: 201912
  14. ROTIGOTINE [Concomitant]
     Active Substance: ROTIGOTINE
     Route: 062
     Dates: start: 20191205, end: 20191215
  15. ROTIGOTINE [Concomitant]
     Active Substance: ROTIGOTINE
     Route: 062
     Dates: start: 20191216, end: 20191225
  16. ROTIGOTINE [Concomitant]
     Active Substance: ROTIGOTINE
     Route: 062
     Dates: start: 201912, end: 201912
  17. ROTIGOTINE [Concomitant]
     Active Substance: ROTIGOTINE
     Route: 062
     Dates: start: 20191226, end: 20200415
  18. ROTIGOTINE [Concomitant]
     Active Substance: ROTIGOTINE
     Route: 062
     Dates: start: 20200416, end: 20200610
  19. ROTIGOTINE [Concomitant]
     Active Substance: ROTIGOTINE
     Route: 062
     Dates: start: 20200612
  20. DOMPERIDONE [Concomitant]
     Active Substance: DOMPERIDONE
     Indication: Prophylaxis
     Route: 048
     Dates: end: 20210204
  21. MAGNESIUM OXIDE [Concomitant]
     Active Substance: MAGNESIUM OXIDE
     Indication: Product used for unknown indication
     Route: 048
  22. LUBIPROSTONE [Concomitant]
     Active Substance: LUBIPROSTONE
     Indication: Product used for unknown indication
     Route: 048
  23. MOSAPRIDE CITRATE DIHYDRATE [Concomitant]
     Active Substance: MOSAPRIDE CITRATE DIHYDRATE
     Indication: Prophylaxis
     Route: 048
  24. FLUNITRAZEPAM [Concomitant]
     Active Substance: FLUNITRAZEPAM
     Indication: Product used for unknown indication
     Route: 048
  25. ZOLPIDEM TARTRATE [Concomitant]
     Active Substance: ZOLPIDEM TARTRATE
     Indication: Product used for unknown indication
     Route: 048
     Dates: start: 20200513
  26. RAMELTEON [Concomitant]
     Active Substance: RAMELTEON
     Indication: Product used for unknown indication
     Route: 048
  27. BISACODYL [Concomitant]
     Active Substance: BISACODYL
     Indication: Product used for unknown indication
     Dosage: PRN
     Route: 054
  28. SENNOSIDES A AND B [Concomitant]
     Active Substance: SENNOSIDES A AND B
     Indication: Constipation
     Route: 048
     Dates: start: 20191209, end: 20210113
  29. SENNOSIDES A AND B [Concomitant]
     Active Substance: SENNOSIDES A AND B
     Dosage: 24
     Route: 048
     Dates: start: 20210114
  30. CARBIDOPA HYDRATE AND LEVODOPA [Concomitant]
     Indication: Product used for unknown indication
     Route: 048
     Dates: start: 20200309, end: 20200309
  31. CARBIDOPA HYDRATE AND LEVODOPA [Concomitant]
     Route: 048
     Dates: start: 20200309, end: 20200309
  32. CARBIDOPA HYDRATE AND LEVODOPA [Concomitant]
     Route: 048
     Dates: start: 20200309, end: 20200310
  33. ENTACAPONE [Concomitant]
     Active Substance: ENTACAPONE
     Indication: Parkinson^s disease
     Route: 048
     Dates: start: 20201015
  34. GLYCERIN [Concomitant]
     Active Substance: GLYCERIN
     Indication: Product used for unknown indication
     Dosage: PRN
     Route: 054
     Dates: start: 20200305
  35. MIRABEGRON [Concomitant]
     Active Substance: MIRABEGRON
     Indication: Hypertonic bladder
     Route: 048
     Dates: start: 20210813

REACTIONS (14)
  - Coronavirus infection [Unknown]
  - Device kink [Recovered/Resolved]
  - Mobility decreased [Unknown]
  - Urge incontinence [Recovering/Resolving]
  - Fatigue [Unknown]
  - Malaise [Recovered/Resolved]
  - Constipation [Not Recovered/Not Resolved]
  - Stoma site hypergranulation [Recovered/Resolved]
  - On and off phenomenon [Recovered/Resolved]
  - Malaise [Recovering/Resolving]
  - Device kink [Unknown]
  - Nausea [Unknown]
  - Device leakage [Recovered/Resolved]
  - Device connection issue [Recovered/Resolved]

NARRATIVE: CASE EVENT DATE: 20200101
